FAERS Safety Report 12823722 (Version 2)
Quarter: 2017Q1

REPORT INFORMATION
  Report Type: Report from Study
  Country: UA (occurrence: UA)
  Receive Date: 20161006
  Receipt Date: 20170221
  Transmission Date: 20170428
  Serious: Yes (Hospitalization)
  Sender: FDA-Public Use
  Company Number: UA-B.I. PHARMACEUTICALS,INC./RIDGEFIELD-2016-BI-38025BI

PATIENT
  Age: 60 Year
  Sex: Male
  Weight: 103 kg

DRUGS (6)
  1. ACETHYLSALICILICI ACID [Concomitant]
     Indication: MYOCARDIAL ISCHAEMIA
     Route: 048
     Dates: start: 201501
  2. CARVEDILOL. [Concomitant]
     Active Substance: CARVEDILOL
     Indication: CARDIAC FAILURE CONGESTIVE
     Route: 048
     Dates: start: 201501
  3. METFORMIN [Concomitant]
     Active Substance: METFORMIN HYDROCHLORIDE
     Indication: TYPE 2 DIABETES MELLITUS
     Route: 048
     Dates: start: 201402
  4. RAMIPRIL. [Concomitant]
     Active Substance: RAMIPRIL
     Indication: HYPERTENSION
     Route: 048
     Dates: start: 2011
  5. BLINDED LINAGLIPTIN [Suspect]
     Active Substance: LINAGLIPTIN
     Indication: TYPE 2 DIABETES MELLITUS
     Route: 048
     Dates: start: 20150818
  6. ROSUVASTATIN. [Concomitant]
     Active Substance: ROSUVASTATIN
     Indication: MYOCARDIAL ISCHAEMIA
     Route: 048
     Dates: start: 201501

REACTIONS (2)
  - Toe amputation [Recovered/Resolved]
  - Diabetic macroangiopathy [Recovered/Resolved]

NARRATIVE: CASE EVENT DATE: 20160511
